FAERS Safety Report 10411153 (Version 1)
Quarter: 2014Q3

REPORT INFORMATION
  Report Type: Spontaneous
  Country: US (occurrence: US)
  Receive Date: 20140826
  Receipt Date: 20140826
  Transmission Date: 20150326
  Serious: Yes (Hospitalization, Other)
  Sender: FDA-Public Use
  Company Number: US-B.I. PHARMACEUTICALS,INC./RIDGEFIELD-2014-BI-39238BP

PATIENT
  Age: 93 Year
  Sex: Male
  Weight: 64 kg

DRUGS (3)
  1. IRON INJECTION [Concomitant]
     Indication: BLOOD IRON DECREASED
     Route: 030
  2. ASPIRIN. [Concomitant]
     Active Substance: ASPIRIN
     Dosage: 81 MG
     Route: 048
  3. AGGRENOX [Suspect]
     Active Substance: ASPIRIN\DIPYRIDAMOLE
     Indication: CEREBROVASCULAR ACCIDENT PROPHYLAXIS
     Dosage: DOSE PER APPLICATION AND DAILY DOSE: 25 MG/ 200 MG
     Route: 048
     Dates: start: 2003, end: 201308

REACTIONS (1)
  - Gingival cancer [Recovered/Resolved]

NARRATIVE: CASE EVENT DATE: 201308
